FAERS Safety Report 6904368-3 (Version None)
Quarter: 2010Q3

REPORT INFORMATION
  Report Type: 
  Country: None (occurrence: None)
  Receive Date: 20100804
  Receipt Date: 20090508
  Transmission Date: 20110219
  Serious: No
  Sender: FDA-Public Use
  Company Number: US-PFIZER INC-2009189198

PATIENT
  Sex: Female

DRUGS (7)
  1. LYRICA [Suspect]
     Dosage: UNK
  2. METFORMIN HCL [Suspect]
     Dosage: UNK
  3. KEPPRA [Suspect]
     Dosage: UNK
  4. BACLOFEN [Suspect]
     Dosage: UNK
  5. TOPAMAX [Suspect]
     Dosage: UNK
  6. OXYCONTIN [Suspect]
     Dosage: UNK
  7. RESTORIL [Concomitant]
     Dosage: UNK

REACTIONS (2)
  - DRUG INEFFECTIVE [None]
  - FIBROMYALGIA [None]
